FAERS Safety Report 16787642 (Version 1)
Quarter: 2019Q4

REPORT INFORMATION
  Report Type: Spontaneous
  Country: US (occurrence: US)
  Receive Date: 20190909
  Receipt Date: 20190909
  Transmission Date: 20200122
  Serious: Yes (Other)
  Sender: FDA-Public Use
  Company Number: None

PATIENT
  Age: 43 Year
  Sex: Female
  Weight: 75.6 kg

DRUGS (4)
  1. AIMOVIG [Suspect]
     Active Substance: ERENUMAB-AOOE
     Indication: MIGRAINE PROPHYLAXIS
     Dates: start: 20180615
  2. NORTIPTYLINE [Concomitant]
     Active Substance: NORTRIPTYLINE
  3. ZOMIG [Concomitant]
     Active Substance: ZOLMITRIPTAN
  4. TOPAMAX [Concomitant]
     Active Substance: TOPIRAMATE

REACTIONS (1)
  - Haematoma [None]

NARRATIVE: CASE EVENT DATE: 20190824
